FAERS Safety Report 9762839 (Version 1)
Quarter: 2013Q4

REPORT INFORMATION
  Report Type: Spontaneous
  Country: US (occurrence: US)
  Receive Date: 20131216
  Receipt Date: 20131216
  Transmission Date: 20140711
  Serious: No
  Sender: FDA-Public Use
  Company Number: US-FOUGERA-2013FO000096

PATIENT
  Age: 87 Year
  Sex: Male

DRUGS (6)
  1. SOLARAZE [Suspect]
     Indication: ACTINIC KERATOSIS
     Route: 061
     Dates: start: 2013, end: 20130409
  2. TRIAMTERENE [Concomitant]
     Indication: HYPERTENSION
  3. LEVOTHYROXINE [Concomitant]
     Indication: THYROID DISORDER
  4. LORATADINE [Concomitant]
     Indication: HYPERSENSITIVITY
  5. POLYETHYLENE GLYCOL [Concomitant]
     Indication: ABNORMAL FAECES
  6. VERAPAMIL HYDROCHLORIDE [Concomitant]
     Indication: CARDIAC DISORDER

REACTIONS (1)
  - Epistaxis [Recovered/Resolved]
